FAERS Safety Report 21184123 (Version 1)
Quarter: 2022Q3

REPORT INFORMATION
  Report Type: Spontaneous
  Country: CA (occurrence: CA)
  Receive Date: 20220808
  Receipt Date: 20220808
  Transmission Date: 20221027
  Serious: Yes (Hospitalization, Other)
  Sender: FDA-Public Use
  Company Number: CA-SAMSUNG BIOEPIS-SB-2022-18980

PATIENT
  Age: 66 Year
  Sex: Male
  Weight: 66 kg

DRUGS (1)
  1. INFLIXIMAB [Suspect]
     Active Substance: INFLIXIMAB
     Indication: Crohn^s disease
     Route: 065

REACTIONS (6)
  - Gastrointestinal carcinoma [Unknown]
  - Ileostomy [Unknown]
  - Neoplasm malignant [Unknown]
  - Procedural pain [Unknown]
  - Expired product administered [Unknown]
  - Off label use [Unknown]
